FAERS Safety Report 4653821-4 (Version None)
Quarter: 2005Q2

REPORT INFORMATION
  Report Type: 
  Country: None (occurrence: None)
  Receive Date: 20050504
  Receipt Date: 20050420
  Transmission Date: 20051028
  Serious: Yes (Hospitalization)
  Sender: FDA-Public Use
  Company Number: 2005US000501

PATIENT
  Age: 23 Year
  Sex: Male

DRUGS (11)
  1. PROGRAF [Suspect]
     Indication: PROPHYLAXIS AGAINST TRANSPLANT REJECTION
     Dosage: 6.00 MG, BID, ORAL
     Route: 048
     Dates: start: 20050309
  2. MYCOPHENOLATE MOFETIL (MYCOPHENOLATE MOFETIL) [Suspect]
     Indication: PROPHYLAXIS AGAINST TRANSPLANT REJECTION
     Dosage: 750.00 MG, BID, ORAL
     Route: 048
     Dates: start: 20050307
  3. DELTASONE [Suspect]
     Indication: PROPHYLAXIS AGAINST TRANSPLANT REJECTION
     Dosage: 7.50 MG, ORAL
     Route: 048
     Dates: start: 20050307
  4. VALGANCICLOVIR (VALGANCICLOVIR) [Concomitant]
  5. FLUCONAZOLE [Concomitant]
  6. FAMOTIDINE [Concomitant]
  7. DOCUSATE SODIUM (DOCUSATE SODIUM) [Concomitant]
  8. ASPIRIN [Concomitant]
  9. PERCOCET [Concomitant]
  10. FUROSEMIDE [Concomitant]
  11. EPOGEN [Concomitant]

REACTIONS (1)
  - GASTRIC ULCER HAEMORRHAGE [None]
